FAERS Safety Report 9899386 (Version 1)
Quarter: 2014Q1

REPORT INFORMATION
  Report Type: Report from Study
  Country: CA (occurrence: CA)
  Receive Date: 20140214
  Receipt Date: 20140214
  Transmission Date: 20141002
  Serious: Yes (Other)
  Sender: FDA-Public Use
  Company Number: CA-JNJFOC-20140207221

PATIENT
  Age: 73 Year
  Sex: Female
  Weight: 58 kg

DRUGS (2)
  1. REMICADE [Suspect]
     Indication: RHEUMATOID ARTHRITIS
     Route: 042
  2. MTX [Concomitant]
     Route: 065

REACTIONS (1)
  - Malignant neoplasm of eye [Unknown]
